FAERS Safety Report 8446921-4 (Version None)
Quarter: 2012Q2

REPORT INFORMATION
  Report Type: 
  Country: None (occurrence: None)
  Receive Date: 20120613
  Receipt Date: 20120613
  Transmission Date: 20120825
  Serious: Yes (Disabling, Other)
  Sender: FDA-Public Use
  Company Number: None

PATIENT
  Sex: Female
  Weight: 140.6151 kg

DRUGS (3)
  1. TIZANIDINE HYDROCHLORIDE [Suspect]
     Indication: FIBROMYALGIA
     Dosage: 4 MG, AT BEDTIME PRN, PO
     Route: 048
     Dates: start: 20111205, end: 20120115
  2. CLOMIPRAMINE HYDROCHLORIDE [Suspect]
     Indication: DEPRESSION
     Dosage: 75 MG, DAILY, PO
     Route: 048
     Dates: start: 20111209, end: 20120115
  3. CLOMIPRAMINE HYDROCHLORIDE [Suspect]
     Indication: OBSESSIVE-COMPULSIVE DISORDER
     Dosage: 75 MG, DAILY, PO
     Route: 048
     Dates: start: 20111209, end: 20120115

REACTIONS (11)
  - IMPAIRED WORK ABILITY [None]
  - FLANK PAIN [None]
  - HEPATIC NECROSIS [None]
  - ABORTION SPONTANEOUS [None]
  - BRADYCARDIA [None]
  - HEPATITIS [None]
  - DEPRESSION [None]
  - SUICIDAL IDEATION [None]
  - VIOLENCE-RELATED SYMPTOM [None]
  - HYPOTENSION [None]
  - HALLUCINATION [None]
